FAERS Safety Report 19660884 (Version 3)
Quarter: 2021Q3

REPORT INFORMATION
  Report Type: Spontaneous
  Country: US (occurrence: US)
  Receive Date: 20210805
  Receipt Date: 20210923
  Transmission Date: 20211014
  Serious: Yes (Disabling, Other)
  Sender: FDA-Public Use
  Company Number: US-PFIZER INC-202100941846

PATIENT
  Age: 50 Year
  Sex: Female

DRUGS (6)
  1. CHANTIX [Suspect]
     Active Substance: VARENICLINE TARTRATE
     Indication: SMOKING CESSATION THERAPY
     Dosage: UNK
     Dates: start: 20140408, end: 2021
  2. BUPROPION. [Concomitant]
     Active Substance: BUPROPION
  3. CHANTIX [Suspect]
     Active Substance: VARENICLINE TARTRATE
     Indication: ANTIDEPRESSANT THERAPY
  4. WELLBUTRIN [Concomitant]
     Active Substance: BUPROPION HYDROCHLORIDE
  5. XANAX [Concomitant]
     Active Substance: ALPRAZOLAM
  6. NORCO [Concomitant]
     Active Substance: ACETAMINOPHEN\HYDROCODONE BITARTRATE

REACTIONS (10)
  - Suicide attempt [Unknown]
  - Memory impairment [Not Recovered/Not Resolved]
  - Screaming [Recovered/Resolved]
  - Crying [Unknown]
  - Mental impairment [Not Recovered/Not Resolved]
  - Psychotic disorder [Recovered/Resolved]
  - Depression [Recovered/Resolved]
  - Concussion [Unknown]
  - Anger [Recovered/Resolved]
  - Loss of consciousness [Unknown]

NARRATIVE: CASE EVENT DATE: 2018
